FAERS Safety Report 21708603 (Version 1)
Quarter: 2022Q4

REPORT INFORMATION
  Report Type: Spontaneous
  Country: HU (occurrence: HU)
  Receive Date: 20221210
  Receipt Date: 20221210
  Transmission Date: 20230112
  Serious: Yes (Other)
  Sender: FDA-Public Use
  Company Number: HU-002147023-NVSC2022HU283952

PATIENT
  Age: 42 Year
  Sex: Female
  Weight: 52 kg

DRUGS (4)
  1. LETROZOLE [Suspect]
     Active Substance: LETROZOLE
     Indication: Invasive lobular breast carcinoma
     Dosage: 2.5 MG, QD
     Route: 065
     Dates: start: 20220512
  2. RIBOCICLIB [Suspect]
     Active Substance: RIBOCICLIB
     Indication: Invasive lobular breast carcinoma
     Dosage: 600 MG, QD
     Route: 065
     Dates: start: 20220512
  3. LEUPROLIDE ACETATE [Concomitant]
     Active Substance: LEUPROLIDE ACETATE
     Indication: Invasive lobular breast carcinoma
     Dosage: 11.25 MG (EVERY 12 WEEKS)
     Route: 065
     Dates: start: 20220512
  4. DENOSUMAB [Concomitant]
     Active Substance: DENOSUMAB
     Indication: Invasive lobular breast carcinoma
     Dosage: 120 MG, Q4W
     Route: 065
     Dates: start: 20220512

REACTIONS (5)
  - Neutropenia [Unknown]
  - Renal impairment [Unknown]
  - Metastases to bone [Unknown]
  - Nausea [Unknown]
  - Blood calcium increased [Recovered/Resolved]

NARRATIVE: CASE EVENT DATE: 20220601
